FAERS Safety Report 7067846 (Version 2)
Quarter: 2014Q3

REPORT INFORMATION
  Report Type: Spontaneous
  Country: US (occurrence: None)
  Receive Date: 20090723
  Receipt Date: 20140725
  Transmission Date: 20150326
  Serious: Yes (Other)
  Sender: FDA-Public Use
  Company Number: 2009S1005555

PATIENT
  Age: 52 Year
  Sex: Female

DRUGS (2)
  1. EZ PEEP (EZ PREP) (ORAL SOLUTION) [Suspect]
     Active Substance: SODIUM PHOSPHATE, DIBASIC\SODIUM PHOSPHATE, MONOBASIC
     Indication: COLONOSCOPY
     Dosage: ;PO
     Route: 048
     Dates: start: 200803, end: 200803
  2. PRILOSEC (OMEPRAZOLE) [Concomitant]
     Active Substance: OMEPRAZOLE MAGNESIUM

REACTIONS (3)
  - Nausea [None]
  - Vomiting [None]
  - Blood creatinine increased [None]

NARRATIVE: CASE EVENT DATE: 200805
